FAERS Safety Report 9511371 (Version 1)
Quarter: 2013Q3

REPORT INFORMATION
  Report Type: Spontaneous
  Country: FR (occurrence: FR)
  Receive Date: 20130910
  Receipt Date: 20130910
  Transmission Date: 20140515
  Serious: Yes (Death, Hospitalization)
  Sender: FDA-Public Use
  Company Number: FR-JNJFOC-20130816500

PATIENT
  Age: 59 Year
  Sex: Female

DRUGS (2)
  1. XEPLION [Suspect]
     Indication: PSYCHOTIC DISORDER
     Route: 030
     Dates: start: 20130712
  2. XEPLION [Suspect]
     Indication: PSYCHOTIC DISORDER
     Route: 030
     Dates: start: 20130730

REACTIONS (4)
  - Dyskinesia [Fatal]
  - Pulmonary embolism [Fatal]
  - Lung disorder [Unknown]
  - Sinus tachycardia [Unknown]
